FAERS Safety Report 10222338 (Version 1)
Quarter: 2014Q2

REPORT INFORMATION
  Report Type: Spontaneous
  Country: US (occurrence: US)
  Receive Date: 20140606
  Receipt Date: 20140606
  Transmission Date: 20141212
  Serious: No
  Sender: FDA-Public Use
  Company Number: US-ASTRAZENECA-2014SE36892

PATIENT
  Age: 73 Year
  Sex: Female
  Weight: 92.5 kg

DRUGS (5)
  1. PRILOSEC [Suspect]
     Indication: GASTROOESOPHAGEAL REFLUX DISEASE
     Route: 048
     Dates: start: 2007
  2. PRILOSEC [Suspect]
     Indication: GASTROOESOPHAGEAL REFLUX DISEASE
     Route: 048
     Dates: start: 2010
  3. MAGNESIUM [Concomitant]
     Indication: HEART RATE IRREGULAR
  4. BP MEDS [Concomitant]
  5. SYNTHROID [Concomitant]
     Indication: THYROID DISORDER

REACTIONS (4)
  - Heart rate irregular [Unknown]
  - Gastrooesophageal reflux disease [Unknown]
  - Thyroid disorder [Unknown]
  - Drug ineffective [Unknown]
